FAERS Safety Report 16834748 (Version 2)
Quarter: 2020Q1

REPORT INFORMATION
  Report Type: Report from Study
  Country: DE (occurrence: DE)
  Receive Date: 20190920
  Receipt Date: 20200324
  Transmission Date: 20200409
  Serious: Yes (Hospitalization, Other)
  Sender: FDA-Public Use
  Company Number: DE-UCBSA-2016008208

PATIENT
  Age: 71 Year
  Sex: Female

DRUGS (19)
  1. ROTIGOTINE [Suspect]
     Active Substance: ROTIGOTINE
     Dosage: ACCIDENTALLY APPLIED TWO PATCHES IN EVENING (6 MG)
     Route: 062
     Dates: start: 20200310, end: 20200312
  2. TRAZODONE [Concomitant]
     Active Substance: TRAZODONE HYDROCHLORIDE
     Indication: BLOOD PRESSURE MEASUREMENT
     Dosage: UNK
  3. TELMISARTAN. [Concomitant]
     Active Substance: TELMISARTAN
     Indication: BLOOD PRESSURE MEASUREMENT
     Dosage: UNK
  4. OXYCODONE [Concomitant]
     Active Substance: OXYCODONE
     Indication: POLYNEUROPATHY
     Dosage: UNK, ONE TIME DOSE
  5. PREGABALIN. [Concomitant]
     Active Substance: PREGABALIN
     Indication: PAIN
     Dosage: UNK
  6. MICARDIS [Concomitant]
     Active Substance: TELMISARTAN
     Indication: PRODUCT USED FOR UNKNOWN INDICATION
     Dosage: 40 MG
  7. XARELTO [Concomitant]
     Active Substance: RIVAROXABAN
     Indication: BLOOD PRESSURE MEASUREMENT
     Dosage: UNK
  8. HCT HEXAL [Concomitant]
     Active Substance: HYDROCHLOROTHIAZIDE
     Indication: FLUID RETENTION
  9. LYRICA [Concomitant]
     Active Substance: PREGABALIN
     Indication: PRODUCT USED FOR UNKNOWN INDICATION
     Dosage: 75 MILLIGRAM, 2X/DAY (BID)
  10. ATORVASTATIN [Concomitant]
     Active Substance: ATORVASTATIN
     Indication: PRODUCT USED FOR UNKNOWN INDICATION
     Dosage: 20 MG
  11. LERCANIDIPINE [Concomitant]
     Active Substance: LERCANIDIPINE
     Indication: BLOOD PRESSURE MEASUREMENT
     Dosage: UNK
  12. AGOMELATIN [Concomitant]
     Active Substance: AGOMELATINE
     Indication: ANTIDEPRESSANT THERAPY
     Dosage: UNK
  13. HCT HEXAL [Concomitant]
     Active Substance: HYDROCHLOROTHIAZIDE
     Indication: BLOOD PRESSURE MEASUREMENT
  14. ROTIGOTINE [Suspect]
     Active Substance: ROTIGOTINE
     Dosage: 2 MILLIGRAM, ONCE DAILY (QD)
     Route: 062
  15. PRAMIPEXOL [Concomitant]
     Active Substance: PRAMIPEXOLE
     Indication: PAIN IN EXTREMITY
  16. RIVOTRIL [Concomitant]
     Active Substance: CLONAZEPAM
     Indication: SLEEP DISORDER
     Dosage: UNK
  17. ROTIGOTINE [Suspect]
     Active Substance: ROTIGOTINE
     Indication: RESTLESS LEGS SYNDROME
     Dosage: 3 MG, ONCE DAILY (QD)
     Route: 062
     Dates: start: 20130601
  18. OXYCODONE [Concomitant]
     Active Substance: OXYCODONE
     Indication: PAIN
  19. VERSATIS [Concomitant]
     Active Substance: LIDOCAINE
     Indication: PAIN IN EXTREMITY
     Dosage: UNK

REACTIONS (23)
  - Hallucination [Recovered/Resolved]
  - Dry mouth [Unknown]
  - Polyneuropathy [Not Recovered/Not Resolved]
  - Nerve injury [Not Recovered/Not Resolved]
  - Peripheral swelling [Not Recovered/Not Resolved]
  - Hypertension [Recovering/Resolving]
  - Dependence [Not Recovered/Not Resolved]
  - Drug ineffective [Unknown]
  - Nightmare [Unknown]
  - Pulmonary embolism [Unknown]
  - Product adhesion issue [Unknown]
  - Paraesthesia [Not Recovered/Not Resolved]
  - Off label use [Unknown]
  - Restless legs syndrome [Not Recovered/Not Resolved]
  - Memory impairment [Unknown]
  - Sleep attacks [Unknown]
  - Pain [Not Recovered/Not Resolved]
  - Disturbance in attention [Not Recovered/Not Resolved]
  - Accidental overdose [Unknown]
  - Pain in extremity [Not Recovered/Not Resolved]
  - Sleep disorder [Unknown]
  - Muscle injury [Not Recovered/Not Resolved]
  - Pneumonitis [Unknown]

NARRATIVE: CASE EVENT DATE: 20130601
